FAERS Safety Report 12803828 (Version 1)
Quarter: 2016Q4

REPORT INFORMATION
  Report Type: Spontaneous
  Country: US (occurrence: US)
  Receive Date: 20161003
  Receipt Date: 20161003
  Transmission Date: 20170207
  Serious: Yes (Hospitalization, Disabling)
  Sender: FDA-Public Use
  Company Number: US-CMP PHARMA-2016CMP00026

PATIENT
  Age: 52 Year
  Sex: Male

DRUGS (1)
  1. ISONIAZID. [Suspect]
     Active Substance: ISONIAZID
     Indication: LATENT TUBERCULOSIS
     Dosage: 300 MG, 1X/DAY
     Route: 065

REACTIONS (3)
  - Subdural haematoma [Unknown]
  - Hyperkalaemia [Unknown]
  - Seizure [Unknown]
